FAERS Safety Report 23266302 (Version 3)
Quarter: 2024Q1

REPORT INFORMATION
  Report Type: Spontaneous
  Country: BO (occurrence: BO)
  Receive Date: 20231206
  Receipt Date: 20240129
  Transmission Date: 20240410
  Serious: Yes (Death, Other)
  Sender: FDA-Public Use
  Company Number: BO-002147023-NVSC2023BO258731

PATIENT
  Sex: Female

DRUGS (1)
  1. TASIGNA [Suspect]
     Active Substance: NILOTINIB
     Indication: Chronic myeloid leukaemia
     Dosage: 400 MG, BID
     Route: 065

REACTIONS (10)
  - Hypoxic-ischaemic encephalopathy [Fatal]
  - Cardio-respiratory arrest [Fatal]
  - Hypovolaemic shock [Fatal]
  - Tuberculosis [Fatal]
  - Leukocytosis [Fatal]
  - Thrombocytosis [Fatal]
  - Anaemia [Fatal]
  - Cardiac arrest [Unknown]
  - Brain injury [Unknown]
  - Gene mutation identification test positive [Unknown]
